FAERS Safety Report 8841409 (Version 1)
Quarter: 2012Q4

REPORT INFORMATION
  Report Type: 
  Country: US (occurrence: US)
  Receive Date: 20121015
  Receipt Date: 20121015
  Transmission Date: 20130627
  Serious: No
  Sender: FDA-Public Use
  Company Number: US-BAYER-2012-104891

PATIENT
  Age: 76 Year
  Sex: Female
  Weight: 48.07 kg

DRUGS (4)
  1. ALEVE CAPLET/TABLET,MIDOL EXTENDED RELIEF CAPLET [Suspect]
     Dosage: 2 DF, QD
     Route: 048
     Dates: start: 1994
  2. GERITOL [Concomitant]
  3. VITAMIN D [Concomitant]
  4. FISH OIL [Concomitant]

REACTIONS (1)
  - No adverse event [None]
